FAERS Safety Report 22171171 (Version 1)
Quarter: 2023Q2

REPORT INFORMATION
  Report Type: Other
  Country: US (occurrence: None)
  Receive Date: 20230404
  Receipt Date: 20230404
  Transmission Date: 20230721
  Serious: Yes (Other)
  Sender: FDA-Public Use
  Company Number: US-ROCHE-2509934

PATIENT
  Age: 33 Year
  Sex: Male

DRUGS (1)
  1. RITUXAN [Suspect]
     Active Substance: RITUXIMAB
     Indication: Systemic lupus erythematosus
     Dosage: INFUSE 1000MG ON WEEK(S) 0 AND WEEK(S) 2 EVERY 4-6
     Route: 042

REACTIONS (2)
  - Cyst [Unknown]
  - Off label use [Unknown]
